FAERS Safety Report 15430803 (Version 1)
Quarter: 2018Q3

REPORT INFORMATION
  Report Type: Spontaneous
  Country: US (occurrence: US)
  Receive Date: 20180921
  Receipt Date: 20180921
  Transmission Date: 20181010
  Serious: Yes (Other)
  Sender: FDA-Public Use
  Company Number: None

PATIENT
  Age: 58 Year
  Sex: Female

DRUGS (4)
  1. FOLIC ACID 1MG [Concomitant]
  2. METHOTREXATE 2.5MG [Concomitant]
     Active Substance: METHOTREXATE
  3. PANTOPRAZOLE 40MG [Concomitant]
     Active Substance: PANTOPRAZOLE SODIUM
  4. HUMIRA [Suspect]
     Active Substance: ADALIMUMAB
     Indication: RHEUMATOID ARTHRITIS
     Dosage: ?          OTHER FREQUENCY:EVERY TWO WEEKS;?
     Route: 058
     Dates: start: 20180629

REACTIONS (2)
  - Surgery [None]
  - Tendon disorder [None]

NARRATIVE: CASE EVENT DATE: 20180821
